FAERS Safety Report 5803846-8 (Version None)
Quarter: 2008Q3

REPORT INFORMATION
  Report Type: 
  Country: None (occurrence: None)
  Receive Date: 20080708
  Receipt Date: 20080703
  Transmission Date: 20090109
  Serious: Yes (Death, Congenital Anomaly, Other)
  Sender: FDA-Public Use
  Company Number: GB-BOEHRINGER INGELHEIM GMBH, GERMANY-2007-UK-04101UK

PATIENT
  Age: 1 Day
  Sex: Female

DRUGS (5)
  1. VIRAMUNE [Suspect]
     Route: 048
     Dates: start: 20061214, end: 20061214
  2. KALETRA [Suspect]
     Dosage: 6DF
     Route: 064
  3. ZIDOVUDINE [Suspect]
     Dosage: 8MG/KG
     Route: 048
     Dates: start: 20061214, end: 20061214
  4. ZIDOVUDINE [Suspect]
     Route: 064
     Dates: start: 20061214
  5. COMBIVIR [Suspect]
     Dosage: 2 DOSAGE FORM
     Route: 064
     Dates: start: 20061023

REACTIONS (2)
  - HYDROCEPHALUS [None]
  - RESPIRATORY DISTRESS [None]
